FAERS Safety Report 20484193 (Version 1)
Quarter: 2022Q1

REPORT INFORMATION
  Report Type: Spontaneous
  Country: US (occurrence: US)
  Receive Date: 20220217
  Receipt Date: 20220217
  Transmission Date: 20220424
  Serious: No
  Sender: FDA-Public Use
  Company Number: US-BAYER-2022A022067

PATIENT
  Age: 70 Year
  Sex: Female

DRUGS (1)
  1. ESTRADIOL HEMIHYDRATE [Suspect]
     Active Substance: ESTRADIOL HEMIHYDRATE
     Dosage: DAILY DOSE .025 MG
     Route: 062
     Dates: start: 20220101

REACTIONS (2)
  - Incorrect dosage administered [None]
  - Product adhesion issue [None]

NARRATIVE: CASE EVENT DATE: 20220101
